FAERS Safety Report 23146442 (Version 2)
Quarter: 2024Q1

REPORT INFORMATION
  Report Type: Spontaneous
  Country: US (occurrence: US)
  Receive Date: 20231104
  Receipt Date: 20240201
  Transmission Date: 20240410
  Serious: No
  Sender: FDA-Public Use
  Company Number: US-GLENMARK PHARMACEUTICALS-2023GMK085519

PATIENT

DRUGS (1)
  1. RYALTRIS [Suspect]
     Active Substance: MOMETASONE FUROATE MONOHYDRATE\OLOPATADINE HYDROCHLORIDE
     Indication: Hypersensitivity
     Dosage: 1 DOSAGE FORM, BID, (1 SPRAY IN EACH NOSTRIL TWICE DAILY)
     Route: 045
     Dates: start: 202308

REACTIONS (5)
  - Incorrect dose administered [Unknown]
  - Product use in unapproved indication [Unknown]
  - Device delivery system issue [Unknown]
  - Product tampering [Unknown]
  - Device occlusion [Unknown]

NARRATIVE: CASE EVENT DATE: 20230101
